FAERS Safety Report 6864833-4 (Version None)
Quarter: 2010Q3

REPORT INFORMATION
  Report Type: 
  Country: None (occurrence: None)
  Receive Date: 20100721
  Receipt Date: 20080404
  Transmission Date: 20110219
  Serious: No
  Sender: FDA-Public Use
  Company Number: US-PFIZER INC-2008031359

PATIENT
  Sex: Male
  Weight: 65.8 kg

DRUGS (3)
  1. CHANTIX [Suspect]
     Indication: SMOKING CESSATION THERAPY
     Dates: start: 20080321, end: 20080327
  2. TRAZODONE HYDROCHLORIDE [Concomitant]
  3. CYMBALTA [Concomitant]

REACTIONS (8)
  - ACTIVITIES OF DAILY LIVING IMPAIRED [None]
  - ASTHENIA [None]
  - DECREASED APPETITE [None]
  - DIZZINESS [None]
  - HYPERTENSION [None]
  - INSOMNIA [None]
  - NAUSEA [None]
  - TREMOR [None]
